FAERS Safety Report 17206847 (Version 1)
Quarter: 2019Q4

REPORT INFORMATION
  Report Type: Report from Study
  Country: IT (occurrence: IT)
  Receive Date: 20191227
  Receipt Date: 20191227
  Transmission Date: 20200122
  Serious: Yes (Hospitalization)
  Sender: FDA-Public Use
  Company Number: IT-TEVA-2019-IT-1157334

PATIENT
  Age: 50 Year
  Sex: Female

DRUGS (3)
  1. AMIODARONE [Suspect]
     Active Substance: AMIODARONE
     Indication: DRUG ABUSE
     Dosage: 12 DOSAGE FORMS
     Route: 048
     Dates: start: 20191014, end: 20191014
  2. SELOKEN 100 MG COMPRESSE [Concomitant]
     Active Substance: METOPROLOL
  3. TORVAST 10 MG COMPRESSE MASTICABILI [Concomitant]

REACTIONS (4)
  - Electrocardiogram QT prolonged [Recovering/Resolving]
  - Right ventricular failure [Recovering/Resolving]
  - Drug abuse [Recovering/Resolving]
  - Malaise [Recovering/Resolving]

NARRATIVE: CASE EVENT DATE: 20191015
